FAERS Safety Report 7706648-0 (Version None)
Quarter: 2011Q3

REPORT INFORMATION
  Report Type: 
  Country: None (occurrence: None)
  Receive Date: 20110824
  Receipt Date: 20110816
  Transmission Date: 20111222
  Serious: Yes (Hospitalization)
  Sender: FDA-Public Use
  Company Number: DE-JNJFOC-20110705541

PATIENT
  Age: 60 Year
  Sex: Female

DRUGS (5)
  1. REMICADE [Suspect]
     Indication: RHEUMATOID ARTHRITIS
     Route: 042
     Dates: start: 20100526
  2. ARAVA [Concomitant]
  3. PREDNISOLONE [Concomitant]
  4. REMICADE [Suspect]
     Route: 042
     Dates: start: 20100401
  5. ALENDRONIC ACID [Concomitant]

REACTIONS (3)
  - LOSS OF CONSCIOUSNESS [None]
  - INFUSION RELATED REACTION [None]
  - CIRCULATORY COLLAPSE [None]
